FAERS Safety Report 21442478 (Version 1)
Quarter: 2022Q4

REPORT INFORMATION
  Report Type: Spontaneous
  Country: US (occurrence: None)
  Receive Date: 20221010
  Receipt Date: 20221010
  Transmission Date: 20230113
  Serious: Yes (Other)
  Sender: FDA-Public Use
  Company Number: None

PATIENT
  Age: 26 Year
  Sex: Female

DRUGS (2)
  1. BUPROPION [Suspect]
     Active Substance: BUPROPION
     Indication: Attention deficit hyperactivity disorder
     Dosage: FREQUENCY : DAILY;?
     Route: 048
     Dates: start: 2012, end: 2012
  2. BUPROPION [Suspect]
     Active Substance: BUPROPION
     Indication: Depression

REACTIONS (4)
  - Product substitution issue [None]
  - Disturbance in attention [None]
  - Fatigue [None]
  - Apathy [None]

NARRATIVE: CASE EVENT DATE: 20120101
